FAERS Safety Report 7068305-6 (Version None)
Quarter: 2010Q4

REPORT INFORMATION
  Report Type: 
  Country: None (occurrence: None)
  Receive Date: 20101028
  Receipt Date: 20101020
  Transmission Date: 20110411
  Serious: Yes (Hospitalization)
  Sender: FDA-Public Use
  Company Number: A0800197A

PATIENT
  Age: 50 Year
  Sex: Male
  Weight: 115 kg

DRUGS (1)
  1. AVANDIA [Suspect]
     Indication: DIABETES MELLITUS
     Dosage: 4MG PER DAY
     Route: 048
     Dates: start: 20030101, end: 20040101

REACTIONS (4)
  - AORTIC VALVE STENOSIS [None]
  - CARDIAC DISORDER [None]
  - CARDIAC OUTPUT DECREASED [None]
  - MITRAL VALVE INCOMPETENCE [None]
